FAERS Safety Report 5724581-0 (Version None)
Quarter: 2008Q2

REPORT INFORMATION
  Report Type: 
  Country: None (occurrence: None)
  Receive Date: 20080501
  Receipt Date: 20080421
  Transmission Date: 20081010
  Serious: Yes (Hospitalization)
  Sender: FDA-Public Use
  Company Number: US-JNJFOC-20080406034

PATIENT
  Sex: Female
  Weight: 40.82 kg

DRUGS (9)
  1. DURAGESIC-100 [Suspect]
     Dosage: 12.5 + 12.5
     Route: 062
  2. DURAGESIC-100 [Suspect]
     Indication: PAIN
     Route: 062
  3. FENTANYL TRANSDERMAL SYSTEM [Suspect]
     Indication: PAIN
     Route: 062
  4. XANAX [Concomitant]
     Indication: PAIN
     Route: 048
  5. PERCOCET [Concomitant]
     Indication: PAIN
     Route: 048
  6. RESTORIL [Concomitant]
     Indication: SLEEP DISORDER
     Route: 048
  7. LEXAPRO [Concomitant]
     Indication: DEPRESSION
     Route: 048
  8. FLORICET [Concomitant]
     Indication: PAIN
     Route: 048
  9. NEXIUM [Concomitant]
     Indication: GASTRIC DISORDER
     Route: 048

REACTIONS (2)
  - HYPERTENSION [None]
  - PNEUMONIA [None]
